FAERS Safety Report 4362406-9 (Version None)
Quarter: 2004Q2

REPORT INFORMATION
  Report Type: 
  Country: None (occurrence: None)
  Receive Date: 20040521
  Receipt Date: 20040517
  Transmission Date: 20050107
  Serious: Yes (Hospitalization)
  Sender: FDA-Public Use
  Company Number: GB-MERCK-0405GBR00128

PATIENT
  Age: 81 Year
  Sex: Female

DRUGS (11)
  1. ACETAMINOPHEN AND CODEINE PHOSPHATE [Concomitant]
     Route: 048
  2. ATENOLOL [Concomitant]
     Route: 048
  3. ATORVASTATIN CALCIUM [Concomitant]
     Route: 048
  4. BETAHISTINE HYDROCHLORIDE [Concomitant]
     Route: 048
  5. CALCIUM CARBONATE [Concomitant]
     Route: 048
  6. DILTIAZEM HYDROCHLORIDE [Concomitant]
     Route: 048
  7. ISOSORBIDE MONONITRATE [Concomitant]
     Route: 048
  8. NITROGLYCERIN [Concomitant]
     Route: 060
  9. PEANUT OIL [Concomitant]
     Route: 065
  10. RANITIDINE [Concomitant]
     Route: 048
  11. VIOXX [Suspect]
     Indication: ARTHRITIS
     Route: 048
     Dates: start: 20010101, end: 20040423

REACTIONS (3)
  - ANGIODYSPLASIA [None]
  - ENDOSCOPY UPPER GASTROINTESTINAL TRACT ABNORMAL [None]
  - MELAENA [None]
